FAERS Safety Report 21529468 (Version 2)
Quarter: 2022Q4

REPORT INFORMATION
  Report Type: Spontaneous
  Country: IT (occurrence: IT)
  Receive Date: 20221031
  Receipt Date: 20221130
  Transmission Date: 20230113
  Serious: Yes (Other)
  Sender: FDA-Public Use
  Company Number: IT-ROCHE-3172593

PATIENT
  Age: 49 Year
  Sex: Female

DRUGS (26)
  1. OXALIPLATIN [Suspect]
     Active Substance: OXALIPLATIN
     Indication: Diffuse large B-cell lymphoma stage IV
     Dosage: 2 CYCLE
     Route: 065
     Dates: start: 2020
  2. METHOTREXATE [Suspect]
     Active Substance: METHOTREXATE
     Indication: Diffuse large B-cell lymphoma stage IV
     Dosage: 1 CYCLE -HIGH DOSE
     Route: 065
     Dates: start: 2020
  3. METHOTREXATE [Suspect]
     Active Substance: METHOTREXATE
     Indication: Prophylaxis
  4. ETOPOSIDE [Suspect]
     Active Substance: ETOPOSIDE
     Indication: Diffuse large B-cell lymphoma stage IV
     Dosage: UNK
     Route: 065
     Dates: start: 2020
  5. ETOPOSIDE [Suspect]
     Active Substance: ETOPOSIDE
     Indication: Autologous haematopoietic stem cell transplant
  6. CYCLOPHOSPHAMIDE [Suspect]
     Active Substance: CYCLOPHOSPHAMIDE
     Indication: Diffuse large B-cell lymphoma stage IV
     Dosage: 5 CYCLES
     Route: 065
     Dates: start: 2020
  7. VINCRISTINE [Suspect]
     Active Substance: VINCRISTINE
     Indication: Diffuse large B-cell lymphoma stage IV
     Dosage: 5 CYCLES OF R-CHOP
     Route: 065
     Dates: start: 2020
  8. CYTARABINE [Suspect]
     Active Substance: CYTARABINE
     Indication: Diffuse large B-cell lymphoma stage IV
     Dosage: 2CYCLES OF SALVAGE CHEMOTHERAPY WITH R-DHAOX
     Route: 065
     Dates: start: 2020
  9. CYTARABINE [Suspect]
     Active Substance: CYTARABINE
     Indication: Autologous haematopoietic stem cell transplant
  10. DOXORUBICIN [Concomitant]
     Active Substance: DOXORUBICIN
     Indication: Diffuse large B-cell lymphoma stage IV
     Dosage: 5 CYCLES OF R-CHOP
     Route: 065
     Dates: start: 2020
  11. MELPHALAN [Suspect]
     Active Substance: MELPHALAN
     Indication: Diffuse large B-cell lymphoma stage IV
     Dosage: UNK
     Route: 065
     Dates: start: 2020
  12. MELPHALAN [Suspect]
     Active Substance: MELPHALAN
     Indication: Autologous haematopoietic stem cell transplant
  13. FOTEMUSTINE [Suspect]
     Active Substance: FOTEMUSTINE
     Indication: Diffuse large B-cell lymphoma stage IV
     Dosage: UNK
     Route: 065
     Dates: start: 2020
  14. FOTEMUSTINE [Suspect]
     Active Substance: FOTEMUSTINE
     Indication: Autologous haematopoietic stem cell transplant
  15. RITUXIMAB [Suspect]
     Active Substance: RITUXIMAB
     Indication: Diffuse large B-cell lymphoma stage IV
     Dosage: 5 CYCLES
     Route: 065
     Dates: start: 2020
  16. TOCILIZUMAB [Concomitant]
     Active Substance: TOCILIZUMAB
     Indication: Cytokine release syndrome
     Dosage: FOUR DOSES
     Route: 065
  17. TISAGENLECLEUCEL [Concomitant]
     Active Substance: TISAGENLECLEUCEL
     Indication: Lymphodepletion
     Dosage: UNK
     Route: 065
  18. DEXAMETHASONE [Concomitant]
     Active Substance: DEXAMETHASONE
     Indication: Cytokine release syndrome
     Dosage: 20 MILLIGRAM, SINGLE DOSE
     Route: 065
  19. THIOTEPA [Concomitant]
     Active Substance: THIOTEPA
     Dosage: 5 MILLIGRAM/KILOGRAM
     Route: 065
  20. FLUDARABINE [Concomitant]
     Active Substance: FLUDARABINE PHOSPHATE
     Indication: Lymphodepletion
     Dosage: UNK
     Route: 065
  21. DAPTOMYCIN [Concomitant]
     Active Substance: DAPTOMYCIN
     Indication: Staphylococcal sepsis
     Dosage: UNK
     Route: 065
  22. CYCLOPHOSPHAMIDE [Concomitant]
     Active Substance: CYCLOPHOSPHAMIDE
     Dosage: 5 CYCLES OF R-CHOP
     Route: 065
  23. GANCICLOVIR [Suspect]
     Active Substance: GANCICLOVIR
     Indication: Human herpesvirus 6 infection
     Dosage: UNK
     Route: 065
  24. OXALIPLATIN [Concomitant]
     Active Substance: OXALIPLATIN
     Dosage: 2CYCLES OF SALVAGE CHEMOTHERAPY WITH R-DHAOX
     Route: 065
  25. RITUXIMAB [Concomitant]
     Active Substance: RITUXIMAB
     Dosage: 2CYCLES OF SALVAGE CHEMOTHERAPY WITH R-DHAOX
     Route: 065
  26. RITUXIMAB [Concomitant]
     Active Substance: RITUXIMAB
     Dosage: 5 CYCLES OF R-CHOP
     Route: 065

REACTIONS (8)
  - Leukaemia [Unknown]
  - Staphylococcal sepsis [Unknown]
  - Thrombocytopenia [Recovered/Resolved]
  - Disease progression [Recovered/Resolved]
  - Human herpesvirus 6 infection [Unknown]
  - Anaemia [Recovered/Resolved]
  - Product use in unapproved indication [Unknown]
  - Off label use [Unknown]

NARRATIVE: CASE EVENT DATE: 20200101
